FAERS Safety Report 5514267-X (Version None)
Quarter: 2007Q4

REPORT INFORMATION
  Report Type: 
  Country: None (occurrence: None)
  Receive Date: 20071102
  Receipt Date: 20070920
  Transmission Date: 20080405
  Serious: Yes (Hospitalization)
  Sender: FDA-Public Use
  Company Number: 519992

PATIENT
  Age: 93 Year
  Sex: Female

DRUGS (9)
  1. BONIVA [Suspect]
     Indication: OSTEOPOROSIS
     Dosage: INTRAVENOUS
     Route: 042
     Dates: start: 20070215
  2. LASIX [Concomitant]
  3. IMDUR [Concomitant]
  4. ALDACTONE [Concomitant]
  5. NEXIUM [Concomitant]
  6. ARIMIDEX [Concomitant]
  7. LEVOTHYROID (LEVOTHYROXINE) [Concomitant]
  8. ASPIRIN [Concomitant]
  9. ADVAIR DISKUS 100/50 [Concomitant]

REACTIONS (3)
  - CELLULITIS [None]
  - CHEST PAIN [None]
  - MYALGIA [None]
